FAERS Safety Report 11375664 (Version 2)
Quarter: 2015Q4

REPORT INFORMATION
  Report Type: Report from Study
  Country: AU (occurrence: AU)
  Receive Date: 20150813
  Receipt Date: 20151012
  Transmission Date: 20160304
  Serious: No
  Sender: FDA-Public Use
  Company Number: AU-UCBSA-2015025221

PATIENT
  Age: 48 Year
  Sex: Male
  Weight: 76.3 kg

DRUGS (6)
  1. PRISTIQ EXTENDED RELEASE [Concomitant]
     Active Substance: DESVENLAFAXINE SUCCINATE
     Indication: DEPRESSION
     Dosage: 150 MG, ONCE DAILY (QD)
     Route: 048
     Dates: start: 20120612
  2. PRISTIQ EXTENDED RELEASE [Concomitant]
     Active Substance: DESVENLAFAXINE SUCCINATE
     Indication: ANXIETY
  3. NUROFEN [Concomitant]
     Active Substance: IBUPROFEN
     Indication: CERVICOGENIC HEADACHE
     Dosage: 200 MG, AS NEEDED (PRN)
     Route: 048
     Dates: start: 200307
  4. LACOSAMIDE EP [Suspect]
     Active Substance: LACOSAMIDE
     Indication: EPILEPSY
     Dosage: UNK
     Route: 048
     Dates: start: 20110704
  5. PARACETAMOL [Concomitant]
     Active Substance: ACETAMINOPHEN
     Indication: CERVICOGENIC HEADACHE
     Dosage: 1 G, AS NEEDED (PRN)
     Route: 048
     Dates: start: 200307
  6. NUROFEN PLUS [Concomitant]
     Active Substance: CODEINE PHOSPHATE\IBUPROFEN
     Indication: CERVICOGENIC HEADACHE
     Dosage: 2 DF, AS NEEDED (PRN)
     Route: 048
     Dates: start: 200307

REACTIONS (1)
  - Syncope [Recovered/Resolved]

NARRATIVE: CASE EVENT DATE: 20120810
